FAERS Safety Report 21300356 (Version 1)
Quarter: 2022Q3

REPORT INFORMATION
  Report Type: Spontaneous
  Country: US (occurrence: US)
  Receive Date: 20220907
  Receipt Date: 20220907
  Transmission Date: 20221026
  Serious: Yes (Other)
  Sender: FDA-Public Use
  Company Number: US-STRIDES ARCOLAB LIMITED-2022SP011196

PATIENT
  Age: 11 Year
  Sex: Male

DRUGS (1)
  1. TACROLIMUS [Suspect]
     Active Substance: TACROLIMUS
     Indication: Liver transplant
     Dosage: UNK
     Route: 065

REACTIONS (4)
  - Glomerulonephritis [Not Recovered/Not Resolved]
  - Polymyositis [Unknown]
  - Bacteraemia [Unknown]
  - Staphylococcal infection [Unknown]
